FAERS Safety Report 15549551 (Version 1)
Quarter: 2018Q4

REPORT INFORMATION
  Report Type: Spontaneous
  Country: US (occurrence: US)
  Receive Date: 20181024
  Receipt Date: 20181024
  Transmission Date: 20190205
  Serious: Yes (Disabling)
  Sender: FDA-Public Use
  Company Number: None

PATIENT
  Age: 41 Year
  Sex: Female

DRUGS (7)
  1. CLINDOMYCIN [Concomitant]
     Active Substance: CLINDAMYCIN
  2. ATIVAN [Concomitant]
     Active Substance: LORAZEPAM
  3. MULTI-VITAMIN [Concomitant]
     Active Substance: .ALPHA.-TOCOPHEROL ACETATE, DL-\ASCORBIC ACID\CYANOCOBALAMIN\FLUORIDE ION\FOLIC ACID\NIACIN\PYRIDOXINE\RIBOFLAVIN\THIAMINE\VITAMIN A\VITAMIN D
  4. IB PROFEN [Concomitant]
  5. MINOCYCLINE [Suspect]
     Active Substance: MINOCYCLINE\MINOCYCLINE HYDROCHLORIDE
     Indication: ACNE
     Dosage: ?          QUANTITY:1 CAPSULE(S);?
     Route: 048
     Dates: start: 20150701, end: 20180730
  6. BUPROPION. [Concomitant]
     Active Substance: BUPROPION
  7. HYDROCORTISONE. [Concomitant]
     Active Substance: HYDROCORTISONE

REACTIONS (10)
  - Lethargy [None]
  - Autoimmune hepatitis [None]
  - Gingival bleeding [None]
  - Lupus-like syndrome [None]
  - Autoimmune thyroid disorder [None]
  - Fatigue [None]
  - Gingival swelling [None]
  - Liver function test abnormal [None]
  - Myalgia [None]
  - Arthralgia [None]

NARRATIVE: CASE EVENT DATE: 20180601
